FAERS Safety Report 5385014-X (Version None)
Quarter: 2007Q3

REPORT INFORMATION
  Report Type: 
  Country: None (occurrence: None)
  Receive Date: 20070712
  Receipt Date: 20070703
  Transmission Date: 20080115
  Serious: Yes (Hospitalization, Other)
  Sender: FDA-Public Use
  Company Number: PHEH2007US08792

PATIENT
  Age: 45 Year
  Sex: Female

DRUGS (8)
  1. ZELNORM [Suspect]
     Indication: IRRITABLE BOWEL SYNDROME
     Dosage: 6 MG, BID
     Route: 048
     Dates: start: 20050101, end: 20070601
  2. CRESTOR [Concomitant]
     Indication: BLOOD CHOLESTEROL INCREASED
     Dosage: 20 MG, QHS
     Route: 048
     Dates: start: 20070531
  3. EFFEXOR XR [Concomitant]
     Dosage: 150 UNK, QD
  4. FENTANYL TRANSDERMAL SYSTEM [Suspect]
     Dosage: 25 MG, UNK
     Route: 062
  5. ZOLOFT [Concomitant]
     Dosage: 100 MG, QHS
  6. SEROQUEL [Concomitant]
     Dosage: 20 MG, QHS
  7. LORTAB [Concomitant]
     Dosage: UNK, TID
  8. PRAVACHOL [Concomitant]
     Dosage: 30 MG, QD

REACTIONS (8)
  - ASTHENIA [None]
  - BLOOD CHOLESTEROL INCREASED [None]
  - CHEST PAIN [None]
  - INTENTIONAL DRUG MISUSE [None]
  - LUNG INFECTION [None]
  - LYMPHADENOPATHY [None]
  - SYNCOPE [None]
  - WHITE BLOOD CELL COUNT INCREASED [None]
